FAERS Safety Report 6111966-6 (Version None)
Quarter: 2009Q1

REPORT INFORMATION
  Report Type: 
  Country: None (occurrence: None)
  Receive Date: 20090310
  Receipt Date: 20090224
  Transmission Date: 20090719
  Serious: Yes (Other)
  Sender: FDA-Public Use
  Company Number: 6044884

PATIENT
  Age: 54 Year
  Sex: Female

DRUGS (7)
  1. LEVOTHYROXINE SODIUM [Suspect]
     Indication: MAJOR DEPRESSION
  2. TRYPTOPHAN, L- (TRYPTOPHAN, L-) [Suspect]
     Indication: MAJOR DEPRESSION
     Dosage: 6 GM (2 GM, 3 IN 1 D)
  3. CLOMIPRAMINE HCL [Suspect]
     Indication: MAJOR DEPRESSION
     Dosage: 250 MG (250 MG, 1 IN 1 D)
  4. LITHIUM CARBONATE [Suspect]
     Indication: MAJOR DEPRESSION
     Dosage: 800 MG (800 MG, 1 IN 1 D)
  5. QUETIAPINE (QUETIAPINE) [Suspect]
     Indication: MAJOR DEPRESSION
     Dosage: 800 MG (800 MG, 1 IN 1 D)
  6. ETOMIDATE [Suspect]
     Indication: ANAESTHESIA
     Dosage: (16 MG)
  7. SUXAMETHONIUM (SUXAMETHONIUM) [Concomitant]

REACTIONS (7)
  - DISEASE RECURRENCE [None]
  - DRUG LEVEL DECREASED [None]
  - GRAND MAL CONVULSION [None]
  - POST PROCEDURAL COMPLICATION [None]
  - POSTICTAL STATE [None]
  - SOMNOLENCE [None]
  - STATUS EPILEPTICUS [None]
